FAERS Safety Report 8386430-4 (Version None)
Quarter: 2012Q2

REPORT INFORMATION
  Report Type: 
  Country: None (occurrence: None)
  Receive Date: 20120525
  Receipt Date: 20120523
  Transmission Date: 20120825
  Serious: Yes (Death)
  Sender: FDA-Public Use
  Company Number: IN-PFIZER INC-2012125580

PATIENT
  Age: 54 Year
  Sex: Male
  Weight: 68.5 kg

DRUGS (1)
  1. SUTENT [Suspect]
     Indication: METASTATIC RENAL CELL CARCINOMA
     Dosage: 50 MG, 1X/DAY; 4 WEEKS ON AND 2 WEEKS OFF
     Route: 048

REACTIONS (4)
  - CHEST PAIN [None]
  - EXCORIATION [None]
  - DEATH [None]
  - STOMATITIS [None]
